FAERS Safety Report 24404468 (Version 1)
Quarter: 2024Q4

REPORT INFORMATION
  Report Type: Report from Study
  Country: CN (occurrence: CN)
  Receive Date: 20241007
  Receipt Date: 20241007
  Transmission Date: 20250114
  Serious: No
  Sender: ROCHE
  Company Number: CN-ROCHE-3501905

PATIENT
  Age: 65 Year
  Sex: Male
  Weight: 80.0 kg

DRUGS (1)
  1. GAZYVA [Suspect]
     Active Substance: OBINUTUZUMAB
     Indication: Follicular lymphoma
     Dosage: ONCE ON DAY 1, DAY 8 AND DAY 15 OF CYCLE 1, 28-DAY CYCLES, VIAL, INTRAVENOUS FLUIDS
     Route: 042
     Dates: start: 20240116

REACTIONS (1)
  - Pyrexia [Unknown]

NARRATIVE: CASE EVENT DATE: 20240129
